FAERS Safety Report 5145701-5 (Version None)
Quarter: 2006Q4

REPORT INFORMATION
  Report Type: 
  Country: None (occurrence: None)
  Receive Date: 20060906
  Receipt Date: 20060425
  Transmission Date: 20070319
  Serious: Yes (Disabling, Other)
  Sender: FDA-Public Use
  Company Number: WAES 0604USA03823

PATIENT
  Age: 41 Year
  Sex: Male

DRUGS (1)
  1. MAXALT [Suspect]
     Indication: MIGRAINE
     Dosage: 20 MG/PO
     Route: 048
     Dates: end: 20060401

REACTIONS (1)
  - MYALGIA [None]
